FAERS Safety Report 6582203-3 (Version None)
Quarter: 2010Q1

REPORT INFORMATION
  Report Type: 
  Country: None (occurrence: None)
  Receive Date: 20100216
  Receipt Date: 20100203
  Transmission Date: 20100710
  Serious: Yes (Other)
  Sender: FDA-Public Use
  Company Number: US-JNJFOC-20100203459

PATIENT
  Sex: Female
  Weight: 94.8 kg

DRUGS (3)
  1. RISPERDAL CONSTA [Suspect]
     Indication: SCHIZOPHRENIA
     Route: 030
  2. RISPERDAL [Suspect]
     Indication: SCHIZOPHRENIA
     Route: 048
  3. WELLBUTRIN [Concomitant]
     Indication: SUICIDAL IDEATION
     Route: 065

REACTIONS (5)
  - BACK PAIN [None]
  - BONE PAIN [None]
  - LIGAMENT PAIN [None]
  - SUICIDAL IDEATION [None]
  - WEIGHT INCREASED [None]
